FAERS Safety Report 7463151-3 (Version None)
Quarter: 2011Q2

REPORT INFORMATION
  Report Type: 
  Country: None (occurrence: None)
  Receive Date: 20110506
  Receipt Date: 20110502
  Transmission Date: 20111010
  Serious: Yes (Hospitalization, Other)
  Sender: FDA-Public Use
  Company Number: US-PFIZER INC-2011023026

PATIENT
  Sex: Male

DRUGS (9)
  1. MYLANTA [Concomitant]
     Indication: GASTROOESOPHAGEAL REFLUX DISEASE
     Dosage: UNK
     Dates: start: 20000101
  2. MAALOX [Concomitant]
     Indication: GASTROOESOPHAGEAL REFLUX DISEASE
     Dosage: UNK
     Dates: end: 20100101
  3. CHANTIX [Suspect]
     Indication: SMOKING CESSATION THERAPY
     Dosage: STARTER PACK
     Dates: start: 20090323, end: 20090501
  4. OXYCONTIN [Concomitant]
     Indication: PAIN
     Dosage: UNK
     Dates: start: 20010101, end: 20100101
  5. DILANTIN [Concomitant]
     Indication: CONVULSION
     Dosage: UNK
     Dates: start: 19920101
  6. PROMETHAZINE HYDROCHLORIDE [Concomitant]
     Indication: GASTROOESOPHAGEAL REFLUX DISEASE
  7. PROMETHAZINE HYDROCHLORIDE [Concomitant]
     Indication: NAUSEA
     Dosage: UNK
     Dates: start: 20020101, end: 20100101
  8. MORPHINE [Concomitant]
     Indication: PAIN
     Dosage: UNK
     Dates: start: 20070101, end: 20100101
  9. BUPRENORPHINE HCL AND NALOXONE HCL [Concomitant]
     Indication: PAIN
     Dosage: UNK
     Dates: start: 20070101, end: 20100101

REACTIONS (17)
  - PSYCHOTIC DISORDER [None]
  - BIPOLAR DISORDER [None]
  - LOSS OF CONSCIOUSNESS [None]
  - AMNESIA [None]
  - FALL [None]
  - ANXIETY [None]
  - SCHIZOAFFECTIVE DISORDER [None]
  - SCHIZOPHRENIA, PARANOID TYPE [None]
  - HOMICIDAL IDEATION [None]
  - DEPENDENT PERSONALITY DISORDER [None]
  - INSOMNIA [None]
  - JOINT INJURY [None]
  - AGGRESSION [None]
  - SUICIDE ATTEMPT [None]
  - ANTISOCIAL PERSONALITY DISORDER [None]
  - DEPRESSION [None]
  - HALLUCINATION [None]
